FAERS Safety Report 7700177-6 (Version None)
Quarter: 2011Q3

REPORT INFORMATION
  Report Type: 
  Country: None (occurrence: None)
  Receive Date: 20110822
  Receipt Date: 20110816
  Transmission Date: 20111222
  Serious: No
  Sender: FDA-Public Use
  Company Number: US-PFIZER INC-2011182958

PATIENT
  Sex: Male

DRUGS (10)
  1. ALDACTONE [Suspect]
     Dosage: 200 MG, UNK
  2. TICLID [Concomitant]
     Indication: HYPERTENSION
     Dosage: UNK
  3. JANUVIA [Concomitant]
     Indication: DIABETES MELLITUS
     Dosage: UNK
  4. LOPRESSOR [Concomitant]
     Dosage: 100 MG, 2X/DAY
  5. ALDACTONE [Suspect]
     Dosage: 100 MG, UNK
     Dates: start: 20110801
  6. PLAVIX [Suspect]
     Dosage: UNK
     Dates: end: 20100101
  7. PROCARDIA [Concomitant]
     Dosage: UNK
  8. DIOVAN HCT [Concomitant]
     Dosage: 320 MG, DAILY
  9. METFORMIN [Concomitant]
     Indication: DIABETES MELLITUS
     Dosage: UNK
  10. INSULIN [Concomitant]
     Indication: DIABETES MELLITUS
     Dosage: UNK

REACTIONS (2)
  - PRURITUS [None]
  - RASH [None]
